FAERS Safety Report 11163737 (Version 1)
Quarter: 2015Q2

REPORT INFORMATION
  Report Type: Spontaneous
  Country: US (occurrence: US)
  Receive Date: 20150604
  Receipt Date: 20150604
  Transmission Date: 20150821
  Serious: Yes (Hospitalization, Other)
  Sender: FDA-Public Use
  Company Number: US-SA-2015SA076650

PATIENT
  Age: 63 Year
  Sex: Female
  Weight: 74.8 kg

DRUGS (5)
  1. CERDELGA [Suspect]
     Active Substance: ELIGLUSTAT
     Indication: LIPIDOSIS
     Route: 048
     Dates: start: 20150313
  2. XYZAL [Concomitant]
     Active Substance: LEVOCETIRIZINE DIHYDROCHLORIDE
     Dosage: 5 MG TABLET
     Route: 048
     Dates: start: 20150324
  3. BENICAR [Concomitant]
     Active Substance: OLMESARTAN MEDOXOMIL
     Dosage: 40 MG TABLET
     Route: 048
     Dates: start: 20150324
  4. LIPITOR [Concomitant]
     Active Substance: ATORVASTATIN CALCIUM
     Route: 048
     Dates: start: 20150324
  5. ASPIRIN. [Concomitant]
     Active Substance: ASPIRIN
     Dosage: 81 MG TABLET DR
     Route: 048
     Dates: start: 20150324

REACTIONS (1)
  - Catheterisation cardiac [Unknown]

NARRATIVE: CASE EVENT DATE: 20150507
